FAERS Safety Report 7026438-4 (Version None)
Quarter: 2010Q4

REPORT INFORMATION
  Report Type: 
  Country: None (occurrence: None)
  Receive Date: 20101004
  Receipt Date: 20100929
  Transmission Date: 20110411
  Serious: Yes (Death)
  Sender: FDA-Public Use
  Company Number: PHFR2010IE04356

PATIENT
  Sex: Male

DRUGS (5)
  1. CLOZARIL [Suspect]
     Indication: SCHIZOPHRENIA
     Dosage: UNK
     Route: 048
     Dates: start: 19940811
  2. DIAZEPAM [Concomitant]
     Dosage: 5 MG, BID
  3. PRAVASTATIN [Concomitant]
     Dosage: 20 MG, QD
  4. ZOLPIDEM [Concomitant]
     Dosage: 10 MG, QD
  5. VALPROATE SODIUM [Concomitant]
     Dosage: 300 MG, BID

REACTIONS (1)
  - SUDDEN DEATH [None]
